FAERS Safety Report 7781121-2 (Version None)
Quarter: 2011Q3

REPORT INFORMATION
  Report Type: 
  Country: None (occurrence: None)
  Receive Date: 20110927
  Receipt Date: 20110922
  Transmission Date: 20111222
  Serious: Yes (Death)
  Sender: FDA-Public Use
  Company Number: PHHY2011MA84345

PATIENT
  Age: 62 Year
  Sex: Male
  Weight: 65 kg

DRUGS (3)
  1. CARDIOASPIRINE [Concomitant]
     Indication: CARDIOVASCULAR EVENT PROPHYLAXIS
     Dates: start: 20090805
  2. AMLODIPINE BESYLATE/VALSARTAN [Suspect]
     Indication: HYPERTENSION
     Dosage: 1 DF (80 MG VALSAR AND 5 MG AMLO), DAILY
     Route: 048
     Dates: start: 20090805
  3. AMARYL [Concomitant]
     Indication: TYPE 2 DIABETES MELLITUS
     Dates: start: 20080101

REACTIONS (1)
  - DEATH [None]
